FAERS Safety Report 22362216 (Version 1)
Quarter: 2023Q2

REPORT INFORMATION
  Report Type: Spontaneous
  Country: DE (occurrence: DE)
  Receive Date: 20230524
  Receipt Date: 20230524
  Transmission Date: 20230721
  Serious: Yes (Death, Congenital Anomaly, Other)
  Sender: FDA-Public Use
  Company Number: DE-ANIPHARMA-2023-DE-000094

PATIENT
  Sex: Male
  Weight: 2 kg

DRUGS (4)
  1. CANDESARTAN [Suspect]
     Active Substance: CANDESARTAN
     Indication: Foetal exposure during pregnancy
     Dosage: 16 MG DAILY
     Route: 050
     Dates: start: 20220602, end: 20221212
  2. AMLODIPINE [Suspect]
     Active Substance: AMLODIPINE BESYLATE
     Dosage: 2.5 MG DAILY
     Route: 050
     Dates: start: 20220602, end: 20221212
  3. LEVOTHYROXINE [Suspect]
     Active Substance: LEVOTHYROXINE
     Route: 050
     Dates: start: 20221216, end: 20230109
  4. METHYLDOPA [Suspect]
     Active Substance: METHYLDOPA
     Route: 050
     Dates: start: 20221213, end: 20230109

REACTIONS (10)
  - Pulmonary hypoplasia [Fatal]
  - Foetal exposure during pregnancy [Recovered/Resolved]
  - Hydrops foetalis [Fatal]
  - Congenital renal disorder [Fatal]
  - Ascites [Fatal]
  - Pericardial effusion [Fatal]
  - Stillbirth [Fatal]
  - Low birth weight baby [Fatal]
  - Head circumference abnormal [Fatal]
  - Congenital urinary tract obstruction [Fatal]
